FAERS Safety Report 7860663-5 (Version None)
Quarter: 2011Q4

REPORT INFORMATION
  Report Type: 
  Country: None (occurrence: None)
  Receive Date: 20111026
  Receipt Date: 20111018
  Transmission Date: 20120403
  Serious: Yes (Hospitalization)
  Sender: FDA-Public Use
  Company Number: DSA_44551_2010

PATIENT
  Sex: Male
  Weight: 149.687 kg

DRUGS (20)
  1. ROZEREM [Concomitant]
  2. AMBIEN [Concomitant]
  3. QUESTRAN [Concomitant]
  4. IMODIUM [Concomitant]
  5. LOSARTAN POTASSIUM [Concomitant]
  6. HUMULIN R [Concomitant]
  7. SYNTHROID [Concomitant]
  8. VITAMIN B COMPLEX CAP [Concomitant]
  9. VITAMIN D [Concomitant]
  10. XENAZINE [Suspect]
     Indication: DYSKINESIA
     Dosage: SEE IMAGE
     Route: 048
     Dates: start: 20100101
  11. XENAZINE [Suspect]
     Indication: DYSKINESIA
     Dosage: SEE IMAGE
     Route: 048
  12. XENAZINE [Suspect]
     Indication: DYSKINESIA
     Dosage: SEE IMAGE
     Route: 048
     Dates: start: 20100101, end: 20100101
  13. XENAZINE [Suspect]
     Indication: DYSKINESIA
     Dosage: SEE IMAGE
     Route: 048
     Dates: start: 20110516
  14. XENAZINE [Suspect]
     Indication: DYSKINESIA
     Dosage: SEE IMAGE
     Route: 048
     Dates: start: 20101103, end: 20100101
  15. METFORMIN HCL [Concomitant]
  16. NEXIUM /01479303/ [Concomitant]
  17. TRAMADOL HCL [Concomitant]
  18. XENAZINE [Suspect]
  19. ASACOL [Concomitant]
  20. HYZAAR [Concomitant]

REACTIONS (13)
  - DIARRHOEA [None]
  - DIZZINESS [None]
  - MUSCULAR WEAKNESS [None]
  - HYPERHIDROSIS [None]
  - ERUCTATION [None]
  - MOVEMENT DISORDER [None]
  - NAUSEA [None]
  - VOMITING [None]
  - SKIN ODOUR ABNORMAL [None]
  - DYSPNOEA [None]
  - DYSSTASIA [None]
  - MUSCULOSKELETAL STIFFNESS [None]
  - ELECTROCARDIOGRAM QT PROLONGED [None]
